FAERS Safety Report 25690365 (Version 1)
Quarter: 2025Q3

REPORT INFORMATION
  Report Type: Spontaneous
  Country: US (occurrence: None)
  Receive Date: 20250815
  Receipt Date: 20250815
  Transmission Date: 20251021
  Serious: Yes (Disabling)
  Sender: FDA-CTU
  Company Number: None

PATIENT

DRUGS (2)
  1. SEMAGLUTIDE [Suspect]
     Active Substance: SEMAGLUTIDE
  2. SEMAGLUTIDE [Concomitant]
     Active Substance: SEMAGLUTIDE
     Dates: start: 20230128

REACTIONS (2)
  - Optic ischaemic neuropathy [None]
  - Blindness [None]

NARRATIVE: CASE EVENT DATE: 20240120
